FAERS Safety Report 4504385-7 (Version None)
Quarter: 2004Q4

REPORT INFORMATION
  Report Type: 
  Country: None (occurrence: None)
  Receive Date: 20041117
  Receipt Date: 20041117
  Transmission Date: 20050328
  Serious: Yes (Disabling)
  Sender: FDA-Public Use
  Company Number: None

PATIENT
  Age: 48 Year
  Sex: Male
  Weight: 90.7194 kg

DRUGS (4)
  1. ZICAM COLD REMEDY [Suspect]
     Indication: ANOSMIA
     Dosage: 2 X PER DAY, 1 SPRAY PER NOSTRIL NASAL
     Route: 045
     Dates: start: 20020401
  2. VERAPAMIL [Concomitant]
  3. LISINOPRIL [Concomitant]
  4. ALLEGRA [Concomitant]

REACTIONS (2)
  - ANOSMIA [None]
  - PAROSMIA [None]
